FAERS Safety Report 10179675 (Version 1)
Quarter: 2014Q2

REPORT INFORMATION
  Report Type: Spontaneous
  Country: US (occurrence: US)
  Receive Date: 20140519
  Receipt Date: 20140519
  Transmission Date: 20141212
  Serious: No
  Sender: FDA-Public Use
  Company Number: US-PFIZER INC-2014136429

PATIENT
  Age: 31 Year
  Sex: Male
  Weight: 70.3 kg

DRUGS (2)
  1. CHANTIX [Suspect]
     Indication: SMOKING CESSATION THERAPY
     Dosage: UNK,DAILY
     Dates: start: 20140511
  2. LORATADINE [Concomitant]
     Dosage: UNK

REACTIONS (3)
  - Discomfort [Recovered/Resolved]
  - Heart rate abnormal [Recovered/Resolved]
  - Middle insomnia [Recovered/Resolved]
